FAERS Safety Report 8807863 (Version 1)
Quarter: 2012Q4

REPORT INFORMATION
  Report Type: 
  Country: CN (occurrence: CN)
  Receive Date: 20120925
  Receipt Date: 20120925
  Transmission Date: 20130627
  Serious: Yes (Other)
  Sender: FDA-Public Use
  Company Number: CN-VIIV HEALTHCARE LIMITED-B0832672A

PATIENT
  Age: 56 Year
  Sex: Female
  Weight: 60 kg

DRUGS (3)
  1. LAMIVUDINE-HIV [Suspect]
     Indication: ANTIVIRAL TREATMENT
     Dosage: .3G per day
     Route: 048
     Dates: start: 20090811, end: 20090812
  2. NEVIRAPINE [Suspect]
     Indication: ANTIVIRAL TREATMENT
     Route: 065
     Dates: start: 20090811, end: 20090812
  3. STAVUDINE [Concomitant]
     Dates: end: 20090812

REACTIONS (9)
  - Dermatitis exfoliative [Recovering/Resolving]
  - Rash papular [Recovering/Resolving]
  - Pruritus [Recovering/Resolving]
  - Blister [Recovering/Resolving]
  - Back pain [Recovering/Resolving]
  - Pain in extremity [Recovering/Resolving]
  - Arthralgia [Recovering/Resolving]
  - Pyrexia [Recovering/Resolving]
  - Condition aggravated [Recovering/Resolving]
